FAERS Safety Report 11906898 (Version 8)
Quarter: 2024Q1

REPORT INFORMATION
  Report Type: Spontaneous
  Country: CA (occurrence: CA)
  Receive Date: 20160111
  Receipt Date: 20240307
  Transmission Date: 20240410
  Serious: Yes (Death, Other)
  Sender: FDA-Public Use
  Company Number: CA-PFIZER INC-2016005408

PATIENT
  Sex: Male

DRUGS (9)
  1. PANTOPRAZOLE [Suspect]
     Active Substance: PANTOPRAZOLE
     Dosage: UNK
     Route: 065
  2. PREGABALIN [Suspect]
     Active Substance: PREGABALIN
     Dosage: UNK
     Route: 065
  3. TRIAMCINOLONE [Suspect]
     Active Substance: TRIAMCINOLONE
     Dosage: UNK
     Route: 065
  4. ACETAMINOPHEN [Suspect]
     Active Substance: ACETAMINOPHEN
     Dosage: UNK
     Route: 065
  5. DUTASTERIDE [Suspect]
     Active Substance: DUTASTERIDE
     Dosage: UNK
     Route: 065
  6. KETOPROFEN [Suspect]
     Active Substance: KETOPROFEN
     Dosage: UNK
     Route: 065
  7. SYMBICORT [Suspect]
     Active Substance: BUDESONIDE\FORMOTEROL FUMARATE DIHYDRATE
     Dosage: UNK
     Route: 065
  8. FORMOTEROL [Suspect]
     Active Substance: FORMOTEROL
     Dosage: UNK
     Route: 055
  9. SPIRIVA [Concomitant]
     Active Substance: TIOTROPIUM BROMIDE MONOHYDRATE
     Dosage: UNK
     Route: 065

REACTIONS (3)
  - Brain injury [Fatal]
  - Myoclonic epilepsy [Fatal]
  - Pallor [Fatal]
